FAERS Safety Report 8608874-5 (Version None)
Quarter: 2012Q3

REPORT INFORMATION
  Report Type: 
  Country: None (occurrence: None)
  Receive Date: 20120808
  Receipt Date: 20120727
  Transmission Date: 20120928
  Serious: Yes (Hospitalization, Other)
  Sender: FDA-Public Use
  Company Number: GB-DEXPHARM-20120824

PATIENT
  Age: 81 Year
  Sex: Male

DRUGS (6)
  1. ASPIRIN [Concomitant]
  2. DICLOFENAC SODIUM [Suspect]
  3. FINASTERIDE [Concomitant]
  4. ATENOLOL [Suspect]
  5. CODEINE PHOSPHATE [Concomitant]
  6. ACETAMINOPHEN [Concomitant]

REACTIONS (3)
  - BRADYCARDIA [None]
  - TROPONIN I INCREASED [None]
  - RENAL FAILURE ACUTE [None]
